FAERS Safety Report 10542554 (Version 1)
Quarter: 2014Q4

REPORT INFORMATION
  Report Type: Spontaneous
  Country: US (occurrence: None)
  Receive Date: 20141023
  Receipt Date: 20141023
  Transmission Date: 20150529
  Serious: Yes (Life-Threatening)
  Sender: FDA-Public Use
  Company Number: None

PATIENT
  Age: 73 Year
  Sex: Female

DRUGS (3)
  1. GENERAL ANESTHESIA MEDICATIONS FOR PROCEDURAL INTUBATION (PROPOFOL, FENTANYL, SUCCINYLCHOLINE) [Concomitant]
  2. COCAINE [Suspect]
     Active Substance: COCAINE
     Indication: LOCAL ANAESTHESIA
     Dosage: 2 NASAL COCAINE PLEDGETS?1 TIME?TOPICAL
     Route: 061
     Dates: start: 20140909, end: 20140909
  3. LIDOCAINE. [Concomitant]
     Active Substance: LIDOCAINE

REACTIONS (1)
  - Ventricular tachycardia [None]

NARRATIVE: CASE EVENT DATE: 20140909
